FAERS Safety Report 4764512-3 (Version None)
Quarter: 2005Q3

REPORT INFORMATION
  Report Type: 
  Country: None (occurrence: None)
  Receive Date: 20050906
  Receipt Date: 20050826
  Transmission Date: 20060218
  Serious: Yes (Other)
  Sender: FDA-Public Use
  Company Number: 2005120624

PATIENT
  Age: 66 Year
  Sex: Male
  Weight: 60.782 kg

DRUGS (6)
  1. LIPITOR [Suspect]
     Indication: CORONARY ARTERY ATHEROSCLEROSIS
     Dosage: ONE HALF OF 10MG TABLET (1 IN 1 D), ORAL
     Route: 048
     Dates: start: 19960101, end: 20050822
  2. ATENOLOL [Concomitant]
  3. PROSCAR [Concomitant]
  4. ALTACE [Concomitant]
  5. ASPIRIN [Concomitant]
  6. FOLIC ACID [Concomitant]

REACTIONS (4)
  - CHEST PAIN [None]
  - CONDITION AGGRAVATED [None]
  - MYALGIA [None]
  - QUADRUPLE VESSEL BYPASS GRAFT [None]
